FAERS Safety Report 8911800 (Version 1)
Quarter: 2012Q4

REPORT INFORMATION
  Report Type: 
  Country: FR (occurrence: FR)
  Receive Date: 20121116
  Receipt Date: 20121116
  Transmission Date: 20130627
  Serious: Yes (Hospitalization)
  Sender: FDA-Public Use
  Company Number: FR-PFIZER INC-2012285378

PATIENT
  Age: 74 Year
  Sex: Female

DRUGS (6)
  1. ATENOLOL [Suspect]
     Dosage: UNK
     Route: 048
     Dates: start: 1999, end: 20111018
  2. INEXIUM [Suspect]
     Indication: GASTRALGIA
     Dosage: 1 DF, 1x/day
     Route: 048
     Dates: start: 20110831, end: 20111028
  3. KARDEGIC [Concomitant]
     Dosage: 75 mg, UNK
     Dates: end: 20111018
  4. MOLSIDOMINE [Concomitant]
  5. PRAVASTATIN [Concomitant]
  6. GLICLAZIDE [Concomitant]
     Dosage: UNK
     Dates: start: 20101115

REACTIONS (3)
  - Lupus-like syndrome [Recovering/Resolving]
  - Photosensitivity reaction [Recovering/Resolving]
  - Toxic skin eruption [Recovering/Resolving]
